FAERS Safety Report 18402648 (Version 1)
Quarter: 2020Q4

REPORT INFORMATION
  Report Type: Spontaneous
  Country: US (occurrence: US)
  Receive Date: 20201019
  Receipt Date: 20201019
  Transmission Date: 20210114
  Serious: No
  Sender: FDA-Public Use
  Company Number: None

PATIENT
  Age: 58 Year
  Sex: Male

DRUGS (2)
  1. AUSTEDO [Suspect]
     Active Substance: DEUTETRABENAZINE
     Indication: TARDIVE DYSKINESIA
     Route: 048
     Dates: start: 202005
  2. AUSTEDO [Suspect]
     Active Substance: DEUTETRABENAZINE

REACTIONS (6)
  - Restlessness [None]
  - Rash [None]
  - Feeling abnormal [None]
  - Skin exfoliation [None]
  - Anxiety [None]
  - Pruritus [None]

NARRATIVE: CASE EVENT DATE: 20200516
